FAERS Safety Report 19162164 (Version 1)
Quarter: 2021Q2

REPORT INFORMATION
  Report Type: Spontaneous
  Country: US (occurrence: US)
  Receive Date: 20210419
  Receipt Date: 20210419
  Transmission Date: 20210717
  Serious: Yes (Hospitalization, Other)
  Sender: FDA-Public Use
  Company Number: None

PATIENT
  Age: 79 Year
  Sex: Female
  Weight: 65.77 kg

DRUGS (15)
  1. VITAMIN K [Concomitant]
     Active Substance: PHYTONADIONE
  2. COENZYME Q10 [Concomitant]
     Active Substance: DIETARY SUPPLEMENT\UBIDECARENONE
  3. MULTI [Concomitant]
  4. GARLIC. [Concomitant]
     Active Substance: GARLIC
  5. BACLOFEN 10MG [Suspect]
     Active Substance: BACLOFEN
     Indication: BACK PAIN
     Dosage: ?          QUANTITY:1 DF DOSAGE FORM;?
     Route: 048
     Dates: start: 20210330, end: 20210331
  6. PRAVASTATIN. [Concomitant]
     Active Substance: PRAVASTATIN
  7. GLUC/CHOND [Concomitant]
  8. TUMERIC [Concomitant]
     Active Substance: HERBALS\TURMERIC
  9. BIOTIN [Concomitant]
     Active Substance: BIOTIN
  10. LUTEIN [Concomitant]
     Active Substance: LUTEIN
  11. FISH OIL [Concomitant]
     Active Substance: FISH OIL
  12. LYSINE [Concomitant]
     Active Substance: LYSINE
  13. GINGER. [Concomitant]
     Active Substance: GINGER
  14. VIT D [Concomitant]
     Active Substance: VITAMIN D NOS
  15. CAL/MAG [Concomitant]

REACTIONS (5)
  - Head injury [None]
  - Fall [None]
  - Concussion [None]
  - Loss of consciousness [None]
  - Dizziness [None]

NARRATIVE: CASE EVENT DATE: 20210330
